FAERS Safety Report 5066995-0 (Version None)
Quarter: 2006Q3

REPORT INFORMATION
  Report Type: 
  Country: None (occurrence: None)
  Receive Date: 20060801
  Receipt Date: 20060724
  Transmission Date: 20061208
  Serious: Yes (Other)
  Sender: FDA-Public Use
  Company Number: GB-SANOFI-SYNTHELABO-A01200605861

PATIENT
  Age: 76 Year
  Sex: Male
  Weight: 64.9 kg

DRUGS (3)
  1. FELODIPINE [Concomitant]
     Dosage: UNK
     Route: 065
  2. ENOXAPARIN SODIUM [Concomitant]
     Dosage: UNK
     Route: 058
  3. OXALIPLATIN [Suspect]
     Indication: COLORECTAL CANCER
     Route: 041
     Dates: start: 20060517, end: 20060517

REACTIONS (3)
  - DYSPHONIA [None]
  - DYSPNOEA [None]
  - LARYNGOSPASM [None]
